FAERS Safety Report 14480750 (Version 1)
Quarter: 2018Q1

REPORT INFORMATION
  Report Type: Spontaneous
  Country: US (occurrence: US)
  Receive Date: 20180201
  Receipt Date: 20180201
  Transmission Date: 20180509
  Serious: No
  Sender: FDA-Public Use
  Company Number: None

PATIENT
  Sex: Female
  Weight: 51.75 kg

DRUGS (1)
  1. TIGER BALM [Suspect]
     Active Substance: CAMPHOR (SYNTHETIC)\CAPSICUM OLEORESIN\MENTHOL\METHYL SALICYLATE
     Indication: MYALGIA
     Dates: start: 20180131, end: 20180131

REACTIONS (3)
  - Application site pruritus [None]
  - Application site erythema [None]
  - Application site rash [None]

NARRATIVE: CASE EVENT DATE: 20180201
